FAERS Safety Report 9553448 (Version 1)
Quarter: 2013Q3

REPORT INFORMATION
  Report Type: Spontaneous
  Country: BR (occurrence: BR)
  Receive Date: 20130925
  Receipt Date: 20130925
  Transmission Date: 20140515
  Serious: Yes (Other)
  Sender: FDA-Public Use
  Company Number: BR-PFIZER INC-2013273808

PATIENT
  Age: 76 Year
  Sex: Male

DRUGS (1)
  1. CELEBRA [Suspect]
     Indication: PAIN
     Dosage: 200 MG (1 CAPSULE), EVERY 12 HOURS
     Route: 048

REACTIONS (1)
  - Bone disorder [Unknown]
